FAERS Safety Report 9186531 (Version 1)
Quarter: 2013Q1

REPORT INFORMATION
  Report Type: Spontaneous
  Country: FR (occurrence: FR)
  Receive Date: 20130325
  Receipt Date: 20130325
  Transmission Date: 20140127
  Serious: Yes (Hospitalization, Other)
  Sender: FDA-Public Use
  Company Number: FR-ASTRAZENECA-2013SE17444

PATIENT
  Age: 19018 Day
  Sex: Male
  Weight: 80 kg

DRUGS (3)
  1. CRESTOR [Suspect]
     Indication: DYSLIPIDAEMIA
     Route: 048
     Dates: start: 2012, end: 20130306
  2. AMLOR [Suspect]
     Indication: HYPERTENSION
     Route: 048
     Dates: start: 201302
  3. VALSARTAN [Concomitant]
     Dates: start: 2012

REACTIONS (2)
  - Hepatocellular injury [Recovering/Resolving]
  - Peripheral ischaemia [Unknown]
